FAERS Safety Report 20112534 (Version 1)
Quarter: 2021Q4

REPORT INFORMATION
  Report Type: Spontaneous
  Country: US (occurrence: US)
  Receive Date: 20211125
  Receipt Date: 20211125
  Transmission Date: 20220303
  Serious: Yes (Hospitalization)
  Sender: FDA-Public Use
  Company Number: US-IGSA-BIG0016721

PATIENT
  Age: 30 Year
  Sex: Female
  Weight: 63.492 kg

DRUGS (5)
  1. GAMUNEX-C [Suspect]
     Active Substance: HUMAN IMMUNOGLOBULIN G
     Indication: Guillain-Barre syndrome
     Dosage: 40 GRAM, SINGLE
     Route: 042
     Dates: start: 20211105, end: 20211105
  2. GAMUNEX-C [Suspect]
     Active Substance: HUMAN IMMUNOGLOBULIN G
     Dosage: 20 GRAM, SINGLE
     Route: 042
     Dates: start: 20211105, end: 20211105
  3. GAMUNEX-C [Suspect]
     Active Substance: HUMAN IMMUNOGLOBULIN G
     Dosage: 5 GRAM, SINGLE
     Route: 042
     Dates: start: 20211105, end: 20211105
  4. GAMUNEX-C [Suspect]
     Active Substance: HUMAN IMMUNOGLOBULIN G
     Dosage: 65 GRAM, Q.4WK.
     Route: 042
     Dates: start: 20211105
  5. GAMUNEX-C [Suspect]
     Active Substance: HUMAN IMMUNOGLOBULIN G
     Dosage: 65 GRAM, Q.2WK.
     Route: 042
     Dates: start: 20211105

REACTIONS (8)
  - Meningitis aseptic [Recovered/Resolved]
  - Nausea [Recovered/Resolved]
  - Vomiting [Recovered/Resolved]
  - Headache [Recovered/Resolved]
  - Sinus tachycardia [Recovering/Resolving]
  - Hypokalaemia [Recovering/Resolving]
  - Muscular weakness [Recovering/Resolving]
  - Pyrexia [Recovered/Resolved]

NARRATIVE: CASE EVENT DATE: 20211107
